FAERS Safety Report 6544605-0 (Version None)
Quarter: 2010Q1

REPORT INFORMATION
  Report Type: 
  Country: None (occurrence: None)
  Receive Date: 20100121
  Receipt Date: 20100108
  Transmission Date: 20100710
  Serious: Yes (Other)
  Sender: FDA-Public Use
  Company Number: PHHY2009JP52163

PATIENT
  Sex: Male

DRUGS (10)
  1. TEGRETOL [Suspect]
     Indication: EPILEPSY
     Dosage: UNK
     Route: 048
     Dates: start: 19790518
  2. TEGRETOL [Suspect]
     Dosage: 400 MG DAILY
     Route: 048
     Dates: start: 19990629, end: 20081216
  3. BENZALIN [Concomitant]
     Indication: EPILEPSY
     Dosage: UNK
     Dates: start: 19990629
  4. ALEVIATIN [Concomitant]
     Indication: EPILEPSY
     Dosage: UNK
     Dates: start: 19990629, end: 20080106
  5. DEPAKENE [Concomitant]
     Dosage: 400MG
     Dates: start: 19990629
  6. DEPAKENE [Concomitant]
     Dosage: 800 MG
     Dates: start: 19990629
  7. DEPAKENE [Concomitant]
     Dosage: 600MG
     Dates: start: 19990629
  8. DEPAKENE [Concomitant]
     Dosage: 800MG
     Dates: start: 19990629
  9. DEPAKENE [Concomitant]
     Dosage: 200MG
     Dates: start: 19990629
  10. FLUOCINONIDE [Concomitant]

REACTIONS (30)
  - ALBINISM [None]
  - BIOPSY SKIN ABNORMAL [None]
  - BLISTER [None]
  - COPROPORPHYRINOGEN INCREASED [None]
  - EPILEPSY [None]
  - ERYTHEMA [None]
  - ESCHAR [None]
  - EXCORIATION [None]
  - HEPATIC CIRRHOSIS [None]
  - HEPATIC FUNCTION ABNORMAL [None]
  - HEPATITIS C [None]
  - HIRSUTISM [None]
  - ICHTHYOSIS [None]
  - LIVER DISORDER [None]
  - MENTAL RETARDATION [None]
  - NEOPLASM [None]
  - PIGMENTATION DISORDER [None]
  - PORPHYRIA NON-ACUTE [None]
  - PORPHYRINS URINE INCREASED [None]
  - PRURITUS GENERALISED [None]
  - RASH [None]
  - SCAB [None]
  - SCAR [None]
  - SEBORRHOEIC DERMATITIS [None]
  - SKIN ATROPHY [None]
  - SKIN EXFOLIATION [None]
  - SKIN LESION [None]
  - SQUAMOUS CELL CARCINOMA [None]
  - ULCER [None]
  - VIRAL LOAD INCREASED [None]
